FAERS Safety Report 7338708-0 (Version None)
Quarter: 2011Q1

REPORT INFORMATION
  Report Type: 
  Country: None (occurrence: None)
  Receive Date: 20110308
  Receipt Date: 20110228
  Transmission Date: 20110831
  Serious: Yes (Other)
  Sender: FDA-Public Use
  Company Number: A0917002A

PATIENT
  Age: 74 Year
  Sex: Female
  Weight: 81.4 kg

DRUGS (23)
  1. TRAMADOL [Suspect]
     Indication: BACK PAIN
  2. OMEPRAZOLE [Concomitant]
  3. SYNTHROID [Concomitant]
  4. CALCIUM [Concomitant]
  5. METHOCARBAMOL [Concomitant]
  6. COZAAR [Concomitant]
  7. ZOLOFT [Concomitant]
  8. ISOSORBIDE MONONITRATE [Concomitant]
  9. TOLTERODINE TARTRATE [Suspect]
     Route: 048
  10. LYSINE [Concomitant]
  11. PLAVIX [Concomitant]
  12. ASA [Concomitant]
  13. OXYBUTYNIN [Concomitant]
  14. FUROSEMIDE [Concomitant]
  15. GABAPENTIN [Suspect]
     Route: 048
  16. ZYRTEC [Concomitant]
  17. SPIRONOLACTONE [Concomitant]
  18. SERTRALINE HYDROCHLORIDE [Concomitant]
  19. ATENOLOL [Concomitant]
  20. OMACOR [Suspect]
     Route: 048
  21. SIMVASTATIN [Concomitant]
  22. FENOFIBRATE [Concomitant]
  23. MULTI-VITAMINS [Concomitant]

REACTIONS (10)
  - ALOPECIA [None]
  - INTERVERTEBRAL DISC PROTRUSION [None]
  - SURGERY [None]
  - INCOHERENT [None]
  - SPINAL FRACTURE [None]
  - DIARRHOEA [None]
  - FLATULENCE [None]
  - BACK INJURY [None]
  - FALL [None]
  - TREATMENT NONCOMPLIANCE [None]
